FAERS Safety Report 22123841 (Version 3)
Quarter: 2023Q2

REPORT INFORMATION
  Report Type: Report from Study
  Country: IN (occurrence: IN)
  Receive Date: 20230322
  Receipt Date: 20230622
  Transmission Date: 20230721
  Serious: Yes (Other)
  Sender: FDA-Public Use
  Company Number: IN-BIOGEN-2023BI01194479

PATIENT
  Age: 54 Year
  Sex: Female

DRUGS (5)
  1. AVONEX [Suspect]
     Active Substance: INTERFERON BETA-1A
     Indication: Multiple sclerosis
     Route: 050
     Dates: start: 20220915
  2. AVONEX [Suspect]
     Active Substance: INTERFERON BETA-1A
     Route: 050
     Dates: start: 201206, end: 202204
  3. AVONEX [Suspect]
     Active Substance: INTERFERON BETA-1A
     Route: 050
     Dates: start: 2023
  4. AVONEX [Suspect]
     Active Substance: INTERFERON BETA-1A
  5. Cesar (NOS) [Concomitant]
     Indication: Product used for unknown indication
     Route: 050

REACTIONS (5)
  - Gastric infection [Not Recovered/Not Resolved]
  - Haemoglobin abnormal [Unknown]
  - Heavy menstrual bleeding [Unknown]
  - Pain [Recovered/Resolved with Sequelae]
  - Diarrhoea [Unknown]

NARRATIVE: CASE EVENT DATE: 20230101
